FAERS Safety Report 8862219 (Version 1)
Quarter: 2012Q4

REPORT INFORMATION
  Report Type: 
  Country: FR (occurrence: FR)
  Receive Date: 20121026
  Receipt Date: 20121026
  Transmission Date: 20130627
  Serious: Yes (Hospitalization)
  Sender: FDA-Public Use
  Company Number: FR-ROCHE-1149550

PATIENT
  Age: 79 Year
  Sex: Female

DRUGS (8)
  1. ROCEPHINE [Suspect]
     Indication: PRODUCT USED FOR UNKNOWN INDICATION
     Route: 048
     Dates: start: 20120927, end: 20120930
  2. ZITHROMAX [Suspect]
     Indication: PRODUCT USED FOR UNKNOWN INDICATION
     Route: 048
     Dates: start: 201208, end: 20121003
  3. AUGMENTIN [Concomitant]
     Indication: PNEUMONIA
     Route: 048
     Dates: start: 20120913, end: 20120921
  4. ZYLORIC [Concomitant]
     Route: 065
     Dates: start: 2011
  5. LOXEN [Concomitant]
     Route: 048
     Dates: start: 2011
  6. TAREG [Concomitant]
     Route: 048
     Dates: start: 2011
  7. LANTUS [Concomitant]
     Route: 058
     Dates: start: 2011
  8. ALLOPURINOL [Concomitant]

REACTIONS (2)
  - Rash macular [Recovering/Resolving]
  - Stomatitis [Recovered/Resolved]
